FAERS Safety Report 9199671 (Version 1)
Quarter: 2013Q1

REPORT INFORMATION
  Report Type: Spontaneous
  Country: NL (occurrence: NL)
  Receive Date: 20130329
  Receipt Date: 20130329
  Transmission Date: 20140127
  Serious: Yes (Other)
  Sender: FDA-Public Use
  Company Number: PHHY2013NL028764

PATIENT
  Age: 43 Year
  Sex: Male
  Weight: 65 kg

DRUGS (3)
  1. IRBESARTAN SANDOZ [Suspect]
     Indication: CARDIAC DISORDER
     Dosage: 1 DF, QD
     Dates: start: 20130103
  2. AMIODARONE HYDROCHLORIDE [Interacting]
     Indication: CARDIAC DISORDER
     Dosage: 1 DF, QD
     Dates: start: 1998
  3. METOPROLOL SANDOZ [Interacting]
     Indication: CARDIAC DISORDER
     Dosage: 0.5 DF, QD
     Dates: start: 2002

REACTIONS (4)
  - Arrhythmia [Recovered/Resolved]
  - Blood pressure increased [Recovered/Resolved]
  - Therapeutic response unexpected with drug substitution [Recovered/Resolved]
  - Drug interaction [Unknown]
